FAERS Safety Report 7366333-4 (Version None)
Quarter: 2011Q1

REPORT INFORMATION
  Report Type: 
  Country: None (occurrence: None)
  Receive Date: 20110322
  Receipt Date: 20110314
  Transmission Date: 20110831
  Serious: Yes (Hospitalization)
  Sender: FDA-Public Use
  Company Number: BR-ASTRAZENECA-2011SE14523

PATIENT
  Age: 79 Year
  Sex: Female

DRUGS (6)
  1. MOTILIUM [Concomitant]
     Route: 048
  2. ANCORON [Concomitant]
     Route: 048
  3. NEXIUM [Suspect]
     Indication: HIATUS HERNIA
     Route: 048
     Dates: start: 20060101, end: 20100101
  4. NEXIUM [Suspect]
     Route: 048
     Dates: start: 20100101
  5. LEXOTAN [Concomitant]
     Route: 048
  6. SINVALIP [Concomitant]
     Route: 048

REACTIONS (4)
  - ANAEMIA [None]
  - BRONCHIECTASIS [None]
  - ARRHYTHMIA [None]
  - TACHYCARDIA [None]
